FAERS Safety Report 4566700-8 (Version None)
Quarter: 2005Q1

REPORT INFORMATION
  Report Type: 
  Country: None (occurrence: None)
  Receive Date: 20050201
  Receipt Date: 20050117
  Transmission Date: 20050727
  Serious: Yes (Hospitalization)
  Sender: FDA-Public Use
  Company Number: PHNR2005AU00467

PATIENT
  Age: 33 Year
  Sex: Female

DRUGS (2)
  1. CLOZARIL [Suspect]
     Dosage: 12.5 - 275 MG/DAY
     Route: 048
     Dates: start: 20040322, end: 20050118
  2. CLOZARIL [Suspect]
     Dosage: 25 MG, QD
     Route: 048
     Dates: start: 20050124

REACTIONS (3)
  - INTESTINAL PERFORATION [None]
  - LEUKOCYTOSIS [None]
  - NEUTROPHILIA [None]
